FAERS Safety Report 9859733 (Version 2)
Quarter: 2014Q1

REPORT INFORMATION
  Report Type: Spontaneous
  Country: US (occurrence: US)
  Receive Date: 20140131
  Receipt Date: 20140224
  Transmission Date: 20141002
  Serious: Yes (Death)
  Sender: FDA-Public Use
  Company Number: US-FRI-1000053270

PATIENT
  Sex: Female
  Weight: 37.19 kg

DRUGS (13)
  1. TUDORZA PRESSAIR [Suspect]
     Indication: CHRONIC OBSTRUCTIVE PULMONARY DISEASE
     Dosage: 800MCG
     Route: 055
     Dates: start: 20130715, end: 201401
  2. TUDORZA PRESSAIR [Suspect]
  3. COMBIVENT [Concomitant]
     Dosage: AS NEEDED
     Dates: end: 201401
  4. ASPIRIN [Concomitant]
     Dosage: 81MG
     Dates: end: 201401
  5. ALDACTONE [Concomitant]
     Dosage: 50MG
     Dates: end: 201401
  6. MTV [Concomitant]
     Indication: SUPPLEMENTATION THERAPY
     Dosage: DAILY
     Dates: end: 201401
  7. CALCIUM [Concomitant]
     Indication: SUPPLEMENTATION THERAPY
     Dosage: DAILY
     Dates: end: 201401
  8. COLACE [Concomitant]
  9. PROAIR HFA [Concomitant]
  10. SINGULAIR [Concomitant]
  11. TRAMADOL [Concomitant]
  12. ZESTRIL [Concomitant]
  13. ZOLOFT [Concomitant]

REACTIONS (1)
  - Chronic obstructive pulmonary disease [Fatal]
